APPROVED DRUG PRODUCT: ISOSORBIDE MONONITRATE
Active Ingredient: ISOSORBIDE MONONITRATE
Strength: 60MG
Dosage Form/Route: TABLET, EXTENDED RELEASE;ORAL
Application: A075166 | Product #001
Applicant: SKYEPHARMA AG
Approved: Oct 7, 1999 | RLD: No | RS: No | Type: DISCN